FAERS Safety Report 8053307-3 (Version None)
Quarter: 2012Q1

REPORT INFORMATION
  Report Type: 
  Country: None (occurrence: None)
  Receive Date: 20120118
  Receipt Date: 20120111
  Transmission Date: 20120608
  Serious: Yes (Hospitalization)
  Sender: FDA-Public Use
  Company Number: PT-GLAXOSMITHKLINE-B0774947A

PATIENT
  Sex: Female
  Weight: 85 kg

DRUGS (1)
  1. ALLI [Suspect]
     Indication: WEIGHT DECREASED
     Dosage: 180MG PER DAY
     Route: 048
     Dates: start: 20100901, end: 20110101

REACTIONS (6)
  - ANAL FISTULA [None]
  - SURGERY [None]
  - ANAL FISSURE [None]
  - PROCTALGIA [None]
  - PRODUCT QUALITY ISSUE [None]
  - PAINFUL DEFAECATION [None]
